FAERS Safety Report 9443331 (Version 1)
Quarter: 2013Q3

REPORT INFORMATION
  Report Type: Spontaneous
  Country: GB (occurrence: GB)
  Receive Date: 20130806
  Receipt Date: 20130806
  Transmission Date: 20140515
  Serious: Yes (Death, Hospitalization, Other)
  Sender: FDA-Public Use
  Company Number: GB-B.I. PHARMACEUTICALS,INC./RIDGEFIELD-2013-BI-23568GD

PATIENT
  Age: 74 Year
  Sex: 0

DRUGS (1)
  1. PRADAXA [Suspect]

REACTIONS (6)
  - Duodenal ulcer perforation [Unknown]
  - Septic shock [Unknown]
  - Abdominal pain [Unknown]
  - Renal failure acute [Unknown]
  - Gastrointestinal haemorrhage [Unknown]
  - Intestinal ischaemia [Fatal]
